FAERS Safety Report 6120368-8 (Version None)
Quarter: 2009Q1

REPORT INFORMATION
  Report Type: 
  Country: None (occurrence: None)
  Receive Date: 20090313
  Receipt Date: 20090313
  Transmission Date: 20090719
  Serious: Yes (Other)
  Sender: FDA-Public Use
  Company Number: None

PATIENT
  Sex: Female

DRUGS (2)
  1. ALCAINE [Suspect]
  2. TROPICAMINDE [Suspect]

REACTIONS (1)
  - EYE SWELLING [None]
